FAERS Safety Report 18196357 (Version 1)
Quarter: 2020Q3

REPORT INFORMATION
  Report Type: Spontaneous
  Country: SE (occurrence: SE)
  Receive Date: 20200826
  Receipt Date: 20200826
  Transmission Date: 20201103
  Serious: Yes (Other)
  Sender: FDA-Public Use
  Company Number: SE-TEVA-2020-SE-1819539

PATIENT
  Age: 70 Year
  Sex: Female
  Weight: 55 kg

DRUGS (3)
  1. LETROZOLE. [Suspect]
     Active Substance: LETROZOLE
     Indication: BREAST CANCER
     Dosage: 2.5 MILLIGRAM DAILY;
     Dates: start: 20190501, end: 20200117
  2. PROLIA [Concomitant]
     Active Substance: DENOSUMAB
     Dates: start: 20190501, end: 20200804
  3. CALCIUM [Concomitant]
     Active Substance: CALCIUM
     Dates: start: 20190501, end: 20200804

REACTIONS (2)
  - Mobility decreased [Recovering/Resolving]
  - Pain [Recovering/Resolving]

NARRATIVE: CASE EVENT DATE: 201910
